FAERS Safety Report 19814422 (Version 5)
Quarter: 2022Q1

REPORT INFORMATION
  Report Type: Report from Study
  Country: US (occurrence: US)
  Receive Date: 20210910
  Receipt Date: 20220324
  Transmission Date: 20220423
  Serious: Yes (Hospitalization, Other)
  Sender: FDA-Public Use
  Company Number: US-MYLANLABS-2021M1059523

PATIENT
  Sex: Female
  Weight: 72.57 kg

DRUGS (2)
  1. GLATIRAMER ACETATE [Suspect]
     Active Substance: GLATIRAMER ACETATE
     Indication: Multiple sclerosis
     Dosage: 40 MILLIGRAM, 3XW
     Route: 058
  2. DEVICE [Suspect]
     Active Substance: DEVICE
     Indication: Multiple sclerosis
     Dosage: UNK

REACTIONS (19)
  - Hospitalisation [Unknown]
  - Diplegia [Unknown]
  - Multiple sclerosis relapse [Unknown]
  - Hemiparesis [Unknown]
  - Injection site erythema [Recovering/Resolving]
  - Injection site mass [Unknown]
  - Injection site pain [Recovered/Resolved]
  - Injection site irritation [Unknown]
  - Injection site swelling [Unknown]
  - Device difficult to use [Unknown]
  - Amnesia [Unknown]
  - Hypersomnia [Unknown]
  - Musculoskeletal stiffness [Unknown]
  - Gastric disorder [Unknown]
  - Dizziness [Unknown]
  - Fatigue [Unknown]
  - Somnolence [Unknown]
  - Dysphonia [Unknown]
  - Fibromyalgia [Unknown]
